FAERS Safety Report 6043044-9 (Version None)
Quarter: 2009Q1

REPORT INFORMATION
  Report Type: 
  Country: None (occurrence: None)
  Receive Date: 20090119
  Receipt Date: 20090108
  Transmission Date: 20090719
  Serious: Yes (Death, Other)
  Sender: FDA-Public Use
  Company Number: JP-NOVOPROD-276319

PATIENT
  Age: 85 Year
  Sex: Female
  Weight: 50 kg

DRUGS (9)
  1. NOVOSEVEN [Suspect]
     Indication: CEREBRAL HAEMORRHAGE
     Dosage: 4.8 MG, BID
     Route: 042
     Dates: start: 20080502, end: 20080502
  2. NOVOSEVEN [Suspect]
     Dosage: 4.8 MG, EVERY SECOND HOUR, 11 DOSES
     Route: 042
     Dates: start: 20080503, end: 20080503
  3. NOVOSEVEN [Suspect]
     Dosage: 4.8 EVERY THIRD HOUR 8 DOSES
     Route: 042
     Dates: start: 20080504, end: 20080504
  4. NOVOSEVEN [Suspect]
     Dosage: 4.8 EVERY THIRD HOUR 6 DOSES
     Route: 042
     Dates: start: 20080505, end: 20080505
  5. NOVOSEVEN [Suspect]
     Dosage: 4.8 MG, QID
     Route: 042
     Dates: start: 20080506, end: 20080506
  6. NOVOSEVEN [Suspect]
     Dosage: 4.8 MG, QID
     Route: 042
     Dates: start: 20080507, end: 20080507
  7. MANNITOL [Concomitant]
     Indication: ACQUIRED HAEMOPHILIA
  8. PERDIPINE [Concomitant]
     Route: 042
     Dates: start: 20080501, end: 20080504
  9. DECADRON [Concomitant]
     Route: 042
     Dates: start: 20080505, end: 20080506

REACTIONS (3)
  - MYOCARDIAL INFARCTION [None]
  - RENAL DISORDER [None]
  - SEPTIC SHOCK [None]
